FAERS Safety Report 5614110-4 (Version None)
Quarter: 2008Q1

REPORT INFORMATION
  Report Type: 
  Country: None (occurrence: None)
  Receive Date: 20080130
  Receipt Date: 20080123
  Transmission Date: 20080703
  Serious: Yes (Hospitalization)
  Sender: FDA-Public Use
  Company Number: TPG2008A00047

PATIENT
  Sex: Male

DRUGS (1)
  1. COMPETACT (PIOGLITAZONE HYDROCHLORIDE,METFORMIN HYDROCHLORIDE) [Suspect]
     Indication: DRUG USE FOR UNKNOWN INDICATION
     Dosage: PIOGLIAZONE 15 MG PLUS METFORMIN 850 MG
     Route: 048

REACTIONS (2)
  - MYOCARDIAL INFARCTION [None]
  - TREATMENT NONCOMPLIANCE [None]
